FAERS Safety Report 8829951 (Version 2)
Quarter: 2012Q4

REPORT INFORMATION
  Report Type: 
  Country: GB (occurrence: GB)
  Receive Date: 20121008
  Receipt Date: 20121010
  Transmission Date: 20130627
  Serious: Yes (Other)
  Sender: FDA-Public Use
  Company Number: GB-ABBOTT-12P-167-0991541-00

PATIENT
  Sex: Male

DRUGS (2)
  1. NORVIR [Suspect]
     Indication: PRODUCT USED FOR UNKNOWN INDICATION
  2. NORVIR ORAL [Concomitant]

REACTIONS (3)
  - Malignant neoplasm progression [Unknown]
  - Dysphagia [Unknown]
  - Product quality issue [Unknown]
